FAERS Safety Report 8112003-4 (Version None)
Quarter: 2012Q1

REPORT INFORMATION
  Report Type: 
  Country: None (occurrence: None)
  Receive Date: 20120203
  Receipt Date: 20120127
  Transmission Date: 20120608
  Serious: Yes (Hospitalization)
  Sender: FDA-Public Use
  Company Number: US-BAYER-2011-113844

PATIENT
  Age: 37 Year
  Sex: Female
  Weight: 95 kg

DRUGS (2)
  1. YAZ [Suspect]
     Indication: PREMENSTRUAL SYNDROME
     Dosage: UNK
     Route: 048
     Dates: start: 20070401, end: 20080501
  2. YAZ [Suspect]

REACTIONS (3)
  - INJURY [None]
  - EMOTIONAL DISTRESS [None]
  - PORTAL VEIN THROMBOSIS [None]
